FAERS Safety Report 8621712 (Version 2)
Quarter: 2012Q4

REPORT INFORMATION
  Report Type: 
  Country: US (occurrence: US)
  Receive Date: 20120619
  Receipt Date: 20120917
  Transmission Date: 20130627
  Serious: Yes (Hospitalization)
  Sender: FDA-Public Use
  Company Number: US-BAYER-2012-058168

PATIENT
  Age: 27 Year
  Sex: Female
  Weight: 74.83 kg

DRUGS (12)
  1. YASMIN [Suspect]
     Indication: CONTRACEPTION
     Dosage: UNK
     Dates: start: 200210, end: 200407
  2. TOPAMAX [Concomitant]
     Dosage: UNK
     Dates: start: 2004
  3. MAXALT [Concomitant]
     Indication: MIGRAINE
     Dosage: UNK
     Dates: start: 2004
  4. IBUPROFEN [Concomitant]
     Dosage: UNK UNK, PRN
  5. ZITHROMAX TRI-PAK [Concomitant]
     Indication: SINUSITIS
  6. ZOMIG [Concomitant]
     Dosage: 5 mg, UNK
     Dates: start: 20040713
  7. COMPAZINE [Concomitant]
     Dosage: 25 mg, BID
     Dates: start: 20040713
  8. ALLEGRA-D [FEXOFENADINE HYDROCHLORIDE,PSEUDOEPHEDRINE HYDROCHLORID [Concomitant]
     Dosage: 1 twice daily as needed
  9. EXCEDRIN MIGRAINE [Concomitant]
     Dosage: UNK
     Dates: start: 20040710
  10. AXERT [Concomitant]
     Indication: MIGRAINE
  11. LORTAB [Concomitant]
     Dosage: 5/500 4-6 hrs as needed
  12. NAPRAPAC [Concomitant]
     Dosage: 500, BID

REACTIONS (7)
  - Superior sagittal sinus thrombosis [None]
  - Injury [None]
  - Pain [None]
  - Emotional distress [None]
  - Headache [None]
  - Nausea [None]
  - Vomiting [None]
